FAERS Safety Report 17000253 (Version 1)
Quarter: 2019Q4

REPORT INFORMATION
  Report Type: Report from Study
  Country: US (occurrence: US)
  Receive Date: 20191106
  Receipt Date: 20191106
  Transmission Date: 20200122
  Serious: Yes (Death)
  Sender: FDA-Public Use
  Company Number: NVSC2019US023498

PATIENT
  Age: 72 Year
  Sex: Male

DRUGS (1)
  1. TRAMETINIB [Suspect]
     Active Substance: TRAMETINIB
     Indication: UVEAL MELANOMA
     Dosage: UNK
     Route: 048
     Dates: end: 20181219

REACTIONS (2)
  - Amylase increased [Fatal]
  - Lipase increased [Fatal]

NARRATIVE: CASE EVENT DATE: 20181218
